FAERS Safety Report 7430957-6 (Version None)
Quarter: 2011Q2

REPORT INFORMATION
  Report Type: 
  Country: None (occurrence: None)
  Receive Date: 20110421
  Receipt Date: 20110413
  Transmission Date: 20111010
  Serious: Yes (Hospitalization)
  Sender: FDA-Public Use
  Company Number: GXKR2011DK01273

PATIENT
  Sex: Male

DRUGS (6)
  1. XELODA [Suspect]
     Indication: RECTAL CANCER
     Dosage: UNK UKN, UNK
     Route: 065
  2. AVASTIN [Suspect]
     Indication: RECTAL CANCER
     Dosage: UNK UKN, UNK
     Route: 065
  3. XELODA [Suspect]
     Route: 048
  4. OXALIPLATIN [Suspect]
     Indication: RECTAL CANCER
     Dosage: UNK UKN, UNK
  5. OXALIPLATIN [Suspect]
     Route: 042
  6. AVASTIN [Suspect]
     Route: 042

REACTIONS (3)
  - RECTAL PERFORATION [None]
  - ABDOMINAL PAIN UPPER [None]
  - INFECTION [None]
